FAERS Safety Report 12884877 (Version 4)
Quarter: 2017Q1

REPORT INFORMATION
  Report Type: Spontaneous
  Country: IL (occurrence: IL)
  Receive Date: 20161026
  Receipt Date: 20170307
  Transmission Date: 20170428
  Serious: Yes (Other)
  Sender: FDA-Public Use
  Company Number: IL-PFIZER INC-2016492427

PATIENT
  Sex: Male
  Weight: 3.72 kg

DRUGS (1)
  1. AZITHROMYCIN ANHYDROUS. [Suspect]
     Active Substance: AZITHROMYCIN ANHYDROUS
     Indication: UPPER RESPIRATORY TRACT INFECTION
     Dosage: 500 MG, DAILY
     Route: 064

REACTIONS (3)
  - Neonatal aspiration [Recovered/Resolved]
  - Pyloric stenosis [Unknown]
  - Maternal exposure during pregnancy [Unknown]
